FAERS Safety Report 25419601 (Version 1)
Quarter: 2025Q2

REPORT INFORMATION
  Report Type: Spontaneous
  Country: GB (occurrence: GB)
  Receive Date: 20250610
  Receipt Date: 20250610
  Transmission Date: 20250716
  Serious: Yes (Hospitalization, Other)
  Sender: NOVO NORDISK
  Company Number: None

PATIENT

DRUGS (1)
  1. SAXENDA [Suspect]
     Active Substance: LIRAGLUTIDE
     Indication: Product used for unknown indication

REACTIONS (8)
  - Lymphadenopathy [Unknown]
  - Pruritus genital [Unknown]
  - Skin hypertrophy [Unknown]
  - Thermal burn [Unknown]
  - Ulcer [Unknown]
  - Injection site necrosis [Unknown]
  - Rash [Unknown]
  - Suspected counterfeit product [Unknown]
